FAERS Safety Report 16203254 (Version 1)
Quarter: 2019Q2

REPORT INFORMATION
  Report Type: Spontaneous
  Country: US (occurrence: US)
  Receive Date: 20190416
  Receipt Date: 20190416
  Transmission Date: 20190711
  Serious: Yes (Other)
  Sender: FDA-Public Use
  Company Number: US-ABBVIE-19S-163-2744943-00

PATIENT
  Age: 71 Year
  Sex: Male

DRUGS (1)
  1. LUPRON [Suspect]
     Active Substance: LEUPROLIDE ACETATE
     Indication: PRODUCT USED FOR UNKNOWN INDICATION
     Route: 065

REACTIONS (8)
  - Hypertonic bladder [Unknown]
  - Micturition urgency [Unknown]
  - Diabetes mellitus [Unknown]
  - Gynaecomastia [Unknown]
  - Prostatic specific antigen increased [Unknown]
  - Oesophageal perforation [Unknown]
  - Prostate cancer [Unknown]
  - Prostatic mass [Unknown]

NARRATIVE: CASE EVENT DATE: 1987
